FAERS Safety Report 23830268 (Version 2)
Quarter: 2024Q2

REPORT INFORMATION
  Report Type: Spontaneous
  Country: US (occurrence: US)
  Receive Date: 20240508
  Receipt Date: 20240605
  Transmission Date: 20240715
  Serious: Yes (Hospitalization)
  Sender: FDA-Public Use
  Company Number: US-TAKEDA-2024TUS043950

PATIENT
  Sex: Female
  Weight: 58 kg

DRUGS (1)
  1. LIVTENCITY [Suspect]
     Active Substance: MARIBAVIR
     Indication: Cytomegalovirus colitis
     Dosage: 400 MILLIGRAM, BID
     Route: 065
     Dates: start: 20240409

REACTIONS (2)
  - Urinary tract infection [Unknown]
  - Hair-thread tourniquet syndrome [Unknown]
